FAERS Safety Report 12702673 (Version 1)
Quarter: 2016Q3

REPORT INFORMATION
  Report Type: Spontaneous
  Country: US (occurrence: US)
  Receive Date: 20160831
  Receipt Date: 20160831
  Transmission Date: 20161109
  Serious: No
  Sender: FDA-Public Use
  Company Number: US-BAYER-2016-163023

PATIENT
  Age: 29 Year
  Sex: Male
  Weight: 71.66 kg

DRUGS (1)
  1. MIRALAX [Suspect]
     Active Substance: POLYETHYLENE GLYCOL 3350
     Indication: CONSTIPATION
     Dosage: UNK
     Route: 048
     Dates: start: 201508

REACTIONS (3)
  - Product use issue [None]
  - Product use issue [None]
  - Gastrointestinal motility disorder [None]

NARRATIVE: CASE EVENT DATE: 2016
